FAERS Safety Report 8712994 (Version 4)
Quarter: 2012Q4

REPORT INFORMATION
  Report Type: 
  Country: US (occurrence: US)
  Receive Date: 20120808
  Receipt Date: 20121015
  Transmission Date: 20130627
  Serious: Yes (Other)
  Sender: FDA-Public Use
  Company Number: PHEH2012US015357

PATIENT
  Age: 32 Year
  Sex: Male
  Weight: 81.64 kg

DRUGS (5)
  1. GILENYA [Suspect]
     Indication: MULTIPLE SCLEROSIS
     Dosage: 0.5 mg, QD
     Route: 048
     Dates: start: 20120718, end: 20120730
  2. GILENYA [Suspect]
     Dosage: 0.5 mg, QD
     Route: 048
     Dates: end: 20120816
  3. ALPRAZOLAM [Concomitant]
     Indication: ANXIETY
     Dosage: 0.25 mg, TID
     Route: 048
     Dates: start: 20100215
  4. VITAMIN D3 [Concomitant]
     Dosage: 5000 U, QD
     Route: 048
     Dates: start: 20110107
  5. ADVIL /00109201/ [Concomitant]
     Dosage: 3 DF, PRN
     Route: 048

REACTIONS (8)
  - Tachycardia [Recovered/Resolved with Sequelae]
  - Bradycardia [Unknown]
  - Palpitations [Unknown]
  - Dyspnoea [Unknown]
  - Dizziness [Unknown]
  - Sinus arrhythmia [Recovered/Resolved with Sequelae]
  - Ventricular extrasystoles [Recovered/Resolved with Sequelae]
  - Supraventricular extrasystoles [Recovered/Resolved with Sequelae]
